FAERS Safety Report 11143348 (Version 1)
Quarter: 2015Q2

REPORT INFORMATION
  Report Type: Spontaneous
  Country: DE (occurrence: DE)
  Receive Date: 20150528
  Receipt Date: 20150528
  Transmission Date: 20150821
  Serious: Yes (Other)
  Sender: FDA-Public Use
  Company Number: DE-AUROBINDO-AUR-APL-2015-04587

PATIENT
  Age: 21 Year
  Sex: Female
  Weight: 57 kg

DRUGS (5)
  1. FLUOXETINE [Suspect]
     Active Substance: FLUOXETINE\FLUOXETINE HYDROCHLORIDE
     Indication: ANXIETY DISORDER
     Dosage: 20 MG, ONCE A DAY
     Route: 048
     Dates: start: 20140417, end: 20141017
  2. AMITRIPTYLIN [Suspect]
     Active Substance: AMITRIPTYLINE
     Indication: DEPRESSION
     Dosage: 75 MG, ONCE A DAY
     Route: 048
     Dates: start: 20140417, end: 20141017
  3. MAXIM                              /01257001/ [Concomitant]
     Indication: ORAL CONTRACEPTION
     Dosage: 2 MG, ONCE A DAY
     Route: 048
     Dates: start: 20140417, end: 20140518
  4. IMAP [Suspect]
     Active Substance: FLUSPIRILENE
     Indication: DEPRESSION
     Dosage: UNK
     Route: 030
     Dates: start: 20140417, end: 20141017
  5. FOLIO FORTE [Concomitant]
     Active Substance: FOLIC ACID\VITAMINS
     Indication: PROPHYLAXIS OF NEURAL TUBE DEFECT
     Dosage: 0.8 MG, DAILY
     Route: 048
     Dates: start: 20140605, end: 20141017

REACTIONS (7)
  - Foetal death [Not Recovered/Not Resolved]
  - Premature rupture of membranes [Unknown]
  - Stillbirth [Unknown]
  - Vaginal haemorrhage [Unknown]
  - Maternal exposure during pregnancy [Unknown]
  - Amniotic fluid volume increased [Unknown]
  - Pregnancy on oral contraceptive [Unknown]
